FAERS Safety Report 25457914 (Version 1)
Quarter: 2025Q2

REPORT INFORMATION
  Report Type: Spontaneous
  Country: RO (occurrence: RO)
  Receive Date: 20250620
  Receipt Date: 20250620
  Transmission Date: 20250717
  Serious: Yes (Death, Other)
  Sender: JOHNSON AND JOHNSON
  Company Number: RO-JNJFOC-20250622207

PATIENT
  Age: 48 Year
  Sex: Male

DRUGS (1)
  1. TECVAYLI [Suspect]
     Active Substance: TECLISTAMAB-CQYV
     Indication: Plasma cell myeloma refractory
     Route: 065
     Dates: start: 20250410

REACTIONS (4)
  - Death [Fatal]
  - Delirium [Unknown]
  - Hallucination [Unknown]
  - Muscle tone disorder [Unknown]
